FAERS Safety Report 26049555 (Version 2)
Quarter: 2025Q4

REPORT INFORMATION
  Report Type: Spontaneous
  Country: EU (occurrence: EU)
  Receive Date: 20251115
  Receipt Date: 20251123
  Transmission Date: 20260117
  Serious: Yes (Death, Other)
  Sender: AUROBINDO
  Company Number: EU-SA-2025SA193149

PATIENT
  Age: 86 Year
  Sex: Female

DRUGS (20)
  1. POMALIDOMIDE [Suspect]
     Active Substance: POMALIDOMIDE
     Indication: Plasma cell myeloma refractory
     Dosage: 4 MILLIGRAM, ONCE A DAY (4 MG, QD (DAILY 21 DAY/28))
     Route: 065
     Dates: start: 20240206, end: 20240226
  2. POMALIDOMIDE [Suspect]
     Active Substance: POMALIDOMIDE
     Dosage: 4 MILLIGRAM, ONCE A DAY
     Route: 065
     Dates: start: 20240313, end: 20240401
  3. POMALIDOMIDE [Suspect]
     Active Substance: POMALIDOMIDE
     Dosage: 4 MILLIGRAM, ONCE A DAY
     Route: 065
     Dates: start: 20240409, end: 20240429
  4. POMALIDOMIDE [Suspect]
     Active Substance: POMALIDOMIDE
     Dosage: 4 MILLIGRAM, ONCE A DAY
     Route: 065
     Dates: start: 20240507, end: 20240526
  5. ISATUXIMAB [Suspect]
     Active Substance: ISATUXIMAB
     Indication: Plasma cell myeloma refractory
     Dosage: 680 MILLIGRAM (1 WEEK)
     Route: 065
     Dates: start: 20240206, end: 20240227
  6. ISATUXIMAB [Suspect]
     Active Substance: ISATUXIMAB
     Dosage: 1320 MILLIGRAM (1 WEEK)
     Route: 065
     Dates: start: 20240313, end: 20240326
  7. ISATUXIMAB [Suspect]
     Active Substance: ISATUXIMAB
     Dosage: 1320 MILLIGRAM (1 WEEK)
     Route: 065
     Dates: start: 20240409, end: 20240423
  8. ISATUXIMAB [Suspect]
     Active Substance: ISATUXIMAB
     Dosage: 1300 MILLIGRAM (1 WEEK)
     Route: 065
     Dates: start: 20240507, end: 20240521
  9. DEXAMETHASONE [Suspect]
     Active Substance: DEXAMETHASONE
     Indication: Plasma cell myeloma refractory
     Dosage: 40 MILLIGRAM (1 WEEK)
     Route: 065
     Dates: start: 20240206, end: 20240227
  10. DEXAMETHASONE [Suspect]
     Active Substance: DEXAMETHASONE
     Dosage: 80 MILLIGRAM (1 WEEK)
     Route: 065
     Dates: start: 20240312, end: 20240326
  11. DEXAMETHASONE [Suspect]
     Active Substance: DEXAMETHASONE
     Dosage: 80 MILLIGRAM (1 WEEK)
     Route: 065
     Dates: start: 20240409, end: 20240423
  12. DEXAMETHASONE [Suspect]
     Active Substance: DEXAMETHASONE
     Dosage: 80 MILLIGRAM (1 WEEK)
     Route: 065
     Dates: start: 20240507, end: 20240521
  13. ALLOPURINOL [Concomitant]
     Active Substance: ALLOPURINOL
     Indication: Product used for unknown indication
     Dosage: UNK
     Route: 065
     Dates: start: 20240409, end: 20240526
  14. BACTRIM [Concomitant]
     Active Substance: SULFAMETHOXAZOLE\TRIMETHOPRIM
     Indication: Premedication
     Dosage: UNK (1 WEEK) UNK, TIW (EVERY MONDAY, WEDNESDAY, FRIDAY)
     Route: 065
     Dates: start: 20240206, end: 20240524
  15. VALACYCLOVIR HYDROCHLORIDE [Concomitant]
     Active Substance: VALACYCLOVIR HYDROCHLORIDE
     Indication: Premedication
     Dosage: UNK, CYCLICAL
     Route: 065
     Dates: start: 20240206, end: 20240527
  16. ELIQUIS [Concomitant]
     Active Substance: APIXABAN
     Indication: Arrhythmia
     Dosage: UNK
     Route: 065
  17. NEBIVOLOL [Concomitant]
     Active Substance: NEBIVOLOL
     Indication: Hypertension
     Dosage: UNK
     Route: 065
  18. FLECAINIDE [Concomitant]
     Active Substance: FLECAINIDE
     Indication: Arrhythmia
     Dosage: UNK
     Route: 065
  19. ATACAND [Concomitant]
     Active Substance: CANDESARTAN CILEXETIL
     Indication: Hypertension
     Dosage: UNK
     Route: 065
  20. LERCANIDIPINE [Concomitant]
     Active Substance: LERCANIDIPINE
     Indication: Hypertension
     Dosage: UNK
     Route: 065

REACTIONS (5)
  - Death [Fatal]
  - Renal failure [Not Recovered/Not Resolved]
  - Tremor [Unknown]
  - Nasopharyngitis [Recovered/Resolved]
  - Hypotension [Recovered/Resolved]

NARRATIVE: CASE EVENT DATE: 20240503
